FAERS Safety Report 6086197-9 (Version None)
Quarter: 2009Q1

REPORT INFORMATION
  Report Type: 
  Country: None (occurrence: None)
  Receive Date: 20090218
  Receipt Date: 20090218
  Transmission Date: 20090719
  Serious: Yes (Other)
  Sender: FDA-Public Use
  Company Number: None

PATIENT
  Age: 26 Year
  Sex: Female
  Weight: 51.7101 kg

DRUGS (1)
  1. NITROFURANTOIN [Suspect]
     Indication: URINARY TRACT INFECTION
     Dosage: ONE DAILY PO
     Route: 048
     Dates: start: 20070301, end: 20090217

REACTIONS (3)
  - PRURITUS [None]
  - SWELLING [None]
  - URTICARIA [None]
